FAERS Safety Report 23052534 (Version 2)
Quarter: 2023Q4

REPORT INFORMATION
  Report Type: Report from Study
  Country: GB (occurrence: GB)
  Receive Date: 20231011
  Receipt Date: 20231107
  Transmission Date: 20240110
  Serious: Yes (Life-Threatening)
  Sender: FDA-Public Use
  Company Number: GB-INCYTE CORPORATION-2023IN009600

PATIENT

DRUGS (7)
  1. TAFASITAMAB [Suspect]
     Active Substance: TAFASITAMAB
     Indication: Follicular lymphoma
     Dosage: 12 MILLIGRAM/KILOGRAM (1068 MG) FOR 12 CYCLES WEEKLY THE FIRST 3 CYCLES AND Q2W THEREAFTER
     Route: 042
     Dates: start: 20230315, end: 20230607
  2. TAFASITAMAB [Suspect]
     Active Substance: TAFASITAMAB
     Dosage: 12 MILLIGRAM/KILOGRAM (1084 MG) FOR 12 CYCLES WEEKLY THE FIRST 3 CYCLES AND Q2W THEREAFTER
     Route: 042
     Dates: start: 20230621, end: 20230705
  3. TAFASITAMAB [Suspect]
     Active Substance: TAFASITAMAB
     Dosage: 12 MILLIGRAM/KILOGRAM (1080 MG) FOR 12 CYCLES WEEKLY THE FIRST 3 CYCLES AND Q2W THEREAFTER
     Route: 042
     Dates: start: 20230719
  4. RITUXIMAB [Suspect]
     Active Substance: RITUXIMAB
     Indication: Follicular lymphoma
     Dosage: 375 MILLIGRAM/SQ. METER (800 MG) FOR 5 CYCLES
     Route: 042
     Dates: start: 20230316, end: 20230607
  5. LENALIDOMIDE [Suspect]
     Active Substance: LENALIDOMIDE
     Indication: Follicular lymphoma
     Dosage: 10 MILLIGRAM, QD (ON DAYS 1 TO 21 FOR 12 CYCLES)
     Route: 048
     Dates: start: 20230315, end: 20230607
  6. LENALIDOMIDE [Suspect]
     Active Substance: LENALIDOMIDE
     Dosage: 5 MILLIGRAM, QD (ON DAYS 1 TO 21 FOR 12 CYCLES)
     Route: 048
     Dates: start: 20230614, end: 20230705
  7. LENALIDOMIDE [Suspect]
     Active Substance: LENALIDOMIDE
     Dosage: 5 MILLIGRAM, QD (ON DAYS 1 TO 21 FOR 12 CYCLES)
     Route: 048
     Dates: start: 20230712

REACTIONS (2)
  - Neutrophil count decreased [Recovered/Resolved]
  - Neutrophil count decreased [Recovered/Resolved]

NARRATIVE: CASE EVENT DATE: 20230605
